FAERS Safety Report 15207897 (Version 1)
Quarter: 2018Q3

REPORT INFORMATION
  Report Type: Spontaneous
  Country: DK (occurrence: DK)
  Receive Date: 20180727
  Receipt Date: 20180727
  Transmission Date: 20181010
  Serious: Yes (Disabling)
  Sender: FDA-Public Use
  Company Number: DK-TEVA-2018-DK-930299

PATIENT
  Age: 58 Year
  Sex: Female

DRUGS (3)
  1. AMLODIPINE [Suspect]
     Active Substance: AMLODIPINE BESYLATE
     Indication: HYPERTENSION
     Dosage: 10 MILLIGRAM DAILY;
     Route: 048
     Dates: start: 20150210, end: 20170531
  2. RHINOCORT [Concomitant]
     Active Substance: BUDESONIDE
     Indication: RHINITIS ALLERGIC
     Dosage: 2 DOSAGE FORMS DAILY; STRENGTH: 100 MICROGRAMS/DOSE. DOSE: 1 SUCTION, 2 TIMES, BOTH NOSTRIL.
     Route: 045
     Dates: start: 20150521
  3. METOPROLOL SUCCINATE. [Concomitant]
     Active Substance: METOPROLOL SUCCINATE
     Indication: BLOOD PRESSURE MEASUREMENT
     Dosage: 25 MILLIGRAM DAILY;
     Route: 048
     Dates: start: 20150521

REACTIONS (2)
  - Gingival operation [Recovered/Resolved]
  - Gingival hypertrophy [Unknown]

NARRATIVE: CASE EVENT DATE: 2017
